FAERS Safety Report 7442741-8 (Version None)
Quarter: 2011Q2

REPORT INFORMATION
  Report Type: 
  Country: None (occurrence: None)
  Receive Date: 20110428
  Receipt Date: 20110420
  Transmission Date: 20111010
  Serious: Yes (Other)
  Sender: FDA-Public Use
  Company Number: CHPA2011FR05862

PATIENT
  Age: 49 Year
  Sex: Female

DRUGS (1)
  1. NICOTINELL GUM [Suspect]
     Indication: SMOKING CESSATION THERAPY
     Dosage: 12 MG, QD
     Route: 048

REACTIONS (1)
  - DRUG DEPENDENCE [None]
